FAERS Safety Report 9580173 (Version 1)
Quarter: 2013Q3

REPORT INFORMATION
  Report Type: Spontaneous
  Country: US (occurrence: None)
  Receive Date: 20130916
  Receipt Date: 20130916
  Transmission Date: 20140515
  Serious: Yes (Other)
  Sender: FDA-Public Use
  Company Number: JPI-P-030321

PATIENT
  Age: 55 Year
  Sex: Male
  Weight: 111.13 kg

DRUGS (6)
  1. XYREM [Suspect]
     Indication: SOMNOLENCE
     Dosage: 4.5 GM  (2.25 GM, 2 IN 1 D), ORAL
     Route: 048
     Dates: start: 20121101
  2. XYREM [Suspect]
     Indication: NARCOLEPSY
     Dosage: 4.5 GM  (2.25 GM, 2 IN 1 D), ORAL
     Route: 048
     Dates: start: 20121101
  3. BACLOFEN [Concomitant]
  4. LISINOPRIL [Concomitant]
  5. VERAPAMIL [Concomitant]
  6. CARBAMAZEPINE [Concomitant]

REACTIONS (5)
  - Weight decreased [None]
  - Tremor [None]
  - Nausea [None]
  - Anxiety [None]
  - Disturbance in attention [None]
